FAERS Safety Report 9693925 (Version 1)
Quarter: 2013Q4

REPORT INFORMATION
  Report Type: Spontaneous
  Country: FR (occurrence: FR)
  Receive Date: 20131118
  Receipt Date: 20131118
  Transmission Date: 20140711
  Serious: Yes (Other)
  Sender: FDA-Public Use
  Company Number: FR-INCYTE CORPORATION-2013IN002674

PATIENT
  Age: 80 Year
  Sex: Male

DRUGS (1)
  1. JAKAVI [Suspect]
     Indication: MYELOFIBROSIS
     Dosage: UNK, UNK, UNK
     Route: 048
     Dates: start: 201205

REACTIONS (2)
  - Hyperkeratosis [Unknown]
  - Squamous cell carcinoma [Unknown]
